FAERS Safety Report 7524894-6 (Version None)
Quarter: 2011Q2

REPORT INFORMATION
  Report Type: 
  Country: None (occurrence: None)
  Receive Date: 20110526
  Receipt Date: 20110513
  Transmission Date: 20111010
  Serious: Yes (Hospitalization)
  Sender: FDA-Public Use
  Company Number: 2011SP001579

PATIENT
  Age: 9 Year
  Sex: Female
  Weight: 28.1 kg

DRUGS (8)
  1. ZOLOFT [Concomitant]
  2. MELATONIN [Concomitant]
  3. SYMBICORT [Concomitant]
  4. PULMICORT [Concomitant]
  5. VENTOLIN [Concomitant]
  6. XOPENEX [Suspect]
     Indication: ASTHMA
     Dosage: 1.25 MG/3ML; PRN; INHALATION, 0.63 MG/3ML; PRN; INHALATION
     Route: 055
     Dates: start: 20110401
  7. XOPENEX [Suspect]
     Indication: ASTHMA
     Dosage: 1.25 MG/3ML; PRN; INHALATION, 0.63 MG/3ML; PRN; INHALATION
     Route: 055
     Dates: end: 20110401
  8. ALLEGRA [Concomitant]

REACTIONS (4)
  - MUSCULAR WEAKNESS [None]
  - COUGH [None]
  - PRESYNCOPE [None]
  - PARAESTHESIA [None]
